FAERS Safety Report 22059141 (Version 3)
Quarter: 2023Q2

REPORT INFORMATION
  Report Type: Spontaneous
  Country: US (occurrence: US)
  Receive Date: 20230303
  Receipt Date: 20230427
  Transmission Date: 20230721
  Serious: Yes (Other)
  Sender: FDA-Public Use
  Company Number: US-PFIZER INC-PV202300038450

PATIENT
  Age: 50 Year
  Sex: Male

DRUGS (1)
  1. BENEFIX [Suspect]
     Active Substance: COAGULATION FACTOR IX RECOMBINANT HUMAN\ISOPROPYL ALCOHOL
     Indication: Haemorrhage
     Dosage: UNK, AS NEEDED (INJECT 4000 UNITS FOR MINOR AND 8000 UNITS FOR MAJOR BLEEDING EVERY 24 HRS)
     Route: 042

REACTIONS (1)
  - Gastrointestinal haemorrhage [Unknown]
